FAERS Safety Report 10650001 (Version 1)
Quarter: 2014Q4

REPORT INFORMATION
  Report Type: Spontaneous
  Country: CH (occurrence: CH)
  Receive Date: 20141212
  Receipt Date: 20141212
  Transmission Date: 20150529
  Serious: Yes (Other)
  Sender: FDA-Public Use
  Company Number: CH-OTSUKA-US-2014-14527

PATIENT

DRUGS (3)
  1. LITHIUM [Suspect]
     Active Substance: LITHIUM CARBONATE
     Indication: BIPOLAR DISORDER RELAPSE PROPHYLAXIS
     Dosage: UNK
     Route: 065
  2. ABILIFY MAINTENA [Suspect]
     Active Substance: ARIPIPRAZOLE
     Indication: BIPOLAR DISORDER RELAPSE PROPHYLAXIS
     Route: 030
     Dates: start: 201410
  3. ABILIFY MAINTENA [Suspect]
     Active Substance: ARIPIPRAZOLE
     Dosage: 300 MG MILLIGRAM(S), UNK
     Route: 030

REACTIONS (5)
  - Circulatory collapse [Recovered/Resolved]
  - Product use issue [Recovered/Resolved]
  - Loss of consciousness [Recovered/Resolved]
  - Tension [Recovered/Resolved]
  - Hypoaesthesia [Recovered/Resolved]

NARRATIVE: CASE EVENT DATE: 20141120
